FAERS Safety Report 4358325-4 (Version None)
Quarter: 2004Q2

REPORT INFORMATION
  Report Type: 
  Country: None (occurrence: None)
  Receive Date: 20040512
  Receipt Date: 20040512
  Transmission Date: 20050107
  Serious: Yes (Hospitalization)
  Sender: FDA-Public Use
  Company Number: None

PATIENT
  Age: 80 Year
  Weight: 83.9154 kg

DRUGS (5)
  1. HEPARIN [Suspect]
     Indication: CATHETERISATION CARDIAC
     Dosage: 9ML/HR IV
     Route: 042
     Dates: start: 20040318, end: 20040330
  2. HEPARIN [Suspect]
     Indication: MYOCARDIAL INFARCTION
     Dosage: 9ML/HR IV
     Route: 042
     Dates: start: 20040318, end: 20040330
  3. EPTIFIBATIDE [Suspect]
     Indication: CATHETERISATION CARDIAC
     Dosage: 13ML/HR IV
     Route: 042
     Dates: start: 20040318, end: 20040330
  4. EPTIFIBATIDE [Suspect]
     Indication: MYOCARDIAL INFARCTION
     Dosage: 13ML/HR IV
     Route: 042
     Dates: start: 20040318, end: 20040330
  5. ASPIRIN [Suspect]
     Dates: start: 20040101, end: 20040320

REACTIONS (5)
  - DIZZINESS [None]
  - DYSPNOEA [None]
  - GASTROINTESTINAL HAEMORRHAGE [None]
  - HAEMATEMESIS [None]
  - SYNCOPE [None]
